FAERS Safety Report 16627619 (Version 1)
Quarter: 2019Q3

REPORT INFORMATION
  Report Type: Spontaneous
  Country: GE (occurrence: GE)
  Receive Date: 20190724
  Receipt Date: 20190724
  Transmission Date: 20191004
  Serious: Yes (Other)
  Sender: FDA-Public Use
  Company Number: GE-JNJFOC-20190723539

PATIENT
  Age: 49 Year
  Sex: Female

DRUGS (2)
  1. RIVAROXABAN [Suspect]
     Active Substance: RIVAROXABAN
     Indication: ATRIAL FIBRILLATION
     Route: 048
  2. ACETYLSALICYLIC ACID [Suspect]
     Active Substance: ASPIRIN
     Route: 065
     Dates: start: 2009

REACTIONS (3)
  - Haemorrhage urinary tract [Unknown]
  - Atrial fibrillation [Unknown]
  - Epistaxis [Unknown]

NARRATIVE: CASE EVENT DATE: 20190709
